FAERS Safety Report 10538032 (Version 1)
Quarter: 2014Q4

REPORT INFORMATION
  Report Type: Spontaneous
  Country: US (occurrence: US)
  Receive Date: 20141023
  Receipt Date: 20141023
  Transmission Date: 20150529
  Serious: No
  Sender: FDA-Public Use
  Company Number: US-ENDO PHARMACEUTICALS INC.-AMIT20130029

PATIENT
  Sex: Female
  Weight: 59.02 kg

DRUGS (1)
  1. AMITRIPTYLINE HCL 25MG [Suspect]
     Active Substance: AMITRIPTYLINE
     Indication: INSOMNIA
     Route: 048

REACTIONS (1)
  - Rash [Recovering/Resolving]
